FAERS Safety Report 6506085-0 (Version None)
Quarter: 2009Q4

REPORT INFORMATION
  Report Type: 
  Country: None (occurrence: None)
  Receive Date: 20091218
  Receipt Date: 20091207
  Transmission Date: 20100525
  Serious: Yes (Other)
  Sender: FDA-Public Use
  Company Number: US-JNJFOC-20091001160

PATIENT
  Sex: Male

DRUGS (2)
  1. INVEGA [Suspect]
     Indication: PARANOIA
     Route: 048
  2. INVEGA [Suspect]
     Indication: DELUSION
     Route: 048

REACTIONS (6)
  - DYSTONIA [None]
  - JOINT STIFFNESS [None]
  - PARAESTHESIA [None]
  - SPEECH DISORDER [None]
  - TACHYCARDIA [None]
  - TONGUE DISORDER [None]
